FAERS Safety Report 21251546 (Version 2)
Quarter: 2022Q3

REPORT INFORMATION
  Report Type: Other
  Country: US (occurrence: None)
  Receive Date: 20220825
  Receipt Date: 20220918
  Transmission Date: 20221026
  Serious: Yes (Other)
  Sender: FDA-Public Use
  Company Number: US-ROCHE-3160073

PATIENT
  Sex: Female

DRUGS (1)
  1. ESBRIET [Suspect]
     Active Substance: PIRFENIDONE
     Indication: Idiopathic pulmonary fibrosis
     Dosage: TAKE 3 TABLET(S) BY MOUTH 3 TIMES A DAY WITH MEALS
     Route: 048

REACTIONS (5)
  - Pneumothorax [Unknown]
  - Upper limb fracture [Unknown]
  - Gastric disorder [Unknown]
  - Oxygen saturation decreased [Unknown]
  - Joint range of motion decreased [Unknown]
